FAERS Safety Report 7169820-7 (Version None)
Quarter: 2010Q4

REPORT INFORMATION
  Report Type: 
  Country: None (occurrence: None)
  Receive Date: 20101206
  Receipt Date: 20101126
  Transmission Date: 20110411
  Serious: Yes (Hospitalization)
  Sender: FDA-Public Use
  Company Number: 2010S1000407

PATIENT
  Age: 27 Year
  Sex: Male

DRUGS (5)
  1. LIVALO [Suspect]
     Indication: HYPERCHOLESTEROLAEMIA
     Dosage: 2 MG; 1X; PO
     Route: 048
     Dates: start: 20100330, end: 20100419
  2. RIBOFLAVIN TAB [Concomitant]
  3. PYDOXAL [Concomitant]
  4. ACTOS [Concomitant]
  5. BIOTIN [Concomitant]

REACTIONS (3)
  - ALTERED STATE OF CONSCIOUSNESS [None]
  - DISCOMFORT [None]
  - RASH [None]
